FAERS Safety Report 8157088-4 (Version None)
Quarter: 2012Q1

REPORT INFORMATION
  Report Type: 
  Country: None (occurrence: None)
  Receive Date: 20120222
  Receipt Date: 20120216
  Transmission Date: 20120608
  Serious: Yes (Hospitalization)
  Sender: FDA-Public Use
  Company Number: DE-ABBOTT-12P-062-0891696-00

PATIENT
  Sex: Female

DRUGS (2)
  1. HUMIRA [Suspect]
     Indication: CROHN'S DISEASE
     Route: 058
     Dates: start: 20111217
  2. AZATHIOPRINE [Concomitant]
     Indication: PRODUCT USED FOR UNKNOWN INDICATION
     Dates: start: 20061101

REACTIONS (5)
  - FEBRILE INFECTION [None]
  - COLITIS ULCERATIVE [None]
  - HAEMANGIOMA OF LIVER [None]
  - HYPOCHROMIC ANAEMIA [None]
  - STRESS [None]
